FAERS Safety Report 4845203-7 (Version None)
Quarter: 2005Q4

REPORT INFORMATION
  Report Type: 
  Country: None (occurrence: None)
  Receive Date: 20051125
  Receipt Date: 20051111
  Transmission Date: 20060501
  Serious: Yes (Other)
  Sender: FDA-Public Use
  Company Number: 2005132544

PATIENT
  Age: 70 Year
  Sex: Male
  Weight: 97.977 kg

DRUGS (7)
  1. VIAGRA [Suspect]
     Indication: ERECTILE DYSFUNCTION
     Dosage: 50 MG AS NECESSARY ORAL
     Route: 048
     Dates: start: 19950101, end: 20050601
  2. ALPHAGAN [Concomitant]
  3. OCUVITE (ASCORBIC ACID, RETINOL, TOCOPHEROL) [Concomitant]
  4. TOPROL (METOPROLOL) [Concomitant]
  5. VICODIN [Concomitant]
  6. MULTIVITAMIN [Concomitant]
  7. ALL OTHER THERAPEUTIC PRODUCTS [Concomitant]

REACTIONS (19)
  - BLINDNESS TRANSIENT [None]
  - BLINDNESS UNILATERAL [None]
  - CAROTID ARTERY ATHEROMA [None]
  - CATARACT [None]
  - CYANOPSIA [None]
  - MACULAR DEGENERATION [None]
  - MACULOPATHY [None]
  - OPEN ANGLE GLAUCOMA [None]
  - PHOTOPHOBIA [None]
  - PUPILLARY REFLEX IMPAIRED [None]
  - RETINAL DEPIGMENTATION [None]
  - RETINAL DETACHMENT [None]
  - RETINAL VASCULAR OCCLUSION [None]
  - SCLERAL DISORDER [None]
  - SCOTOMA [None]
  - VISION BLURRED [None]
  - VISUAL DISTURBANCE [None]
  - VITREOUS DETACHMENT [None]
  - VITREOUS FLOATERS [None]
